FAERS Safety Report 12246118 (Version 1)
Quarter: 2016Q2

REPORT INFORMATION
  Report Type: Spontaneous
  Country: GB (occurrence: GB)
  Receive Date: 20160407
  Receipt Date: 20160407
  Transmission Date: 20160815
  Serious: Yes (Hospitalization)
  Sender: FDA-Public Use
  Company Number: GB-PFIZER INC-2016187106

PATIENT
  Age: 33 Year
  Sex: Female

DRUGS (6)
  1. ATROPINE SULFATE. [Suspect]
     Active Substance: ATROPINE SULFATE
     Dosage: UNK, 2X/DAY
     Route: 047
     Dates: start: 19570704
  2. ATROPINE SULFATE. [Suspect]
     Active Substance: ATROPINE SULFATE
     Indication: RETINAL DETACHMENT
     Dosage: 1 %, UNK
     Route: 047
     Dates: start: 1957
  3. CHLORPROMAZINE. [Concomitant]
     Active Substance: CHLORPROMAZINE
     Indication: ABNORMAL BEHAVIOUR
     Dosage: 25 MG, 3X/DAY
     Dates: start: 195707
  4. ATROPINE SULFATE. [Suspect]
     Active Substance: ATROPINE SULFATE
     Dosage: 1 MG, UNK
     Route: 058
     Dates: start: 19570810
  5. ATROPINE SULFATE. [Suspect]
     Active Substance: ATROPINE SULFATE
     Indication: RETINAL DETACHMENT
     Dosage: 0.65 MG, UNK
     Route: 058
     Dates: start: 19570809
  6. PHENOBARBITONE [Concomitant]
     Active Substance: PHENOBARBITAL
     Indication: ABNORMAL BEHAVIOUR
     Dosage: 32 MG, 3X/DAY

REACTIONS (5)
  - Delirium [Recovered/Resolved]
  - Electrocardiogram T wave abnormal [Recovered/Resolved]
  - Tachycardia [Recovered/Resolved]
  - Psychotic disorder [Recovered/Resolved]
  - Electrocardiogram ST segment elevation [Recovered/Resolved]

NARRATIVE: CASE EVENT DATE: 195707
